FAERS Safety Report 22958243 (Version 4)
Quarter: 2024Q4

REPORT INFORMATION
  Report Type: Spontaneous
  Country: JP (occurrence: JP)
  Receive Date: 20230919
  Receipt Date: 20241223
  Transmission Date: 20250115
  Serious: Yes (Life-Threatening, Hospitalization, Other)
  Sender: ALEXION PHARMACEUTICALS
  Company Number: 2023A211591

PATIENT
  Age: 40 Year
  Weight: 55.2 kg

DRUGS (12)
  1. QUETIAPINE [Suspect]
     Active Substance: QUETIAPINE
     Indication: Schizophrenia
     Dosage: 200 MILLIGRAM, QD
     Route: 048
  2. QUETIAPINE [Suspect]
     Active Substance: QUETIAPINE
     Dosage: 200 MILLIGRAM, QD
     Route: 048
  3. QUETIAPINE [Suspect]
     Active Substance: QUETIAPINE
     Dosage: 200 MILLIGRAM, QD
  4. QUETIAPINE [Suspect]
     Active Substance: QUETIAPINE
     Dosage: 200 MILLIGRAM, QD
  5. QUETIAPINE [Suspect]
     Active Substance: QUETIAPINE
     Dosage: 6.6 GRAM, SINGLE
  6. QUETIAPINE [Suspect]
     Active Substance: QUETIAPINE
     Dosage: 6.6 GRAM, SINGLE
  7. PALIPERIDONE [Concomitant]
     Active Substance: PALIPERIDONE
     Indication: Product used for unknown indication
     Dosage: 6 MILLIGRAM, QD
     Route: 065
  8. PALIPERIDONE [Concomitant]
     Active Substance: PALIPERIDONE
     Dosage: 6 MILLIGRAM, QD
     Route: 065
  9. ESCITALOPRAM [Concomitant]
     Active Substance: ESCITALOPRAM OXALATE
     Indication: Product used for unknown indication
     Dosage: 10 MILLIGRAM, QD
     Route: 065
  10. ESCITALOPRAM [Concomitant]
     Active Substance: ESCITALOPRAM OXALATE
     Dosage: 10 MILLIGRAM, QD
     Route: 065
  11. BROMAZEPAM [Concomitant]
     Active Substance: BROMAZEPAM
     Indication: Product used for unknown indication
     Dosage: 5 MILLIGRAM, PRN
     Route: 048
  12. BROMAZEPAM [Concomitant]
     Active Substance: BROMAZEPAM
     Dosage: 5 MILLIGRAM, PRN

REACTIONS (10)
  - Intentional overdose [Unknown]
  - Toxicity to various agents [Unknown]
  - Seizure [Not Recovered/Not Resolved]
  - Status epilepticus [Recovering/Resolving]
  - Drug level increased [Unknown]
  - Disorientation [Not Recovered/Not Resolved]
  - Mental impairment [Not Recovered/Not Resolved]
  - Hypoxic-ischaemic encephalopathy [Unknown]
  - Electrocardiogram QRS complex prolonged [Unknown]
  - Electrocardiogram abnormal [Unknown]
